FAERS Safety Report 11448919 (Version 1)
Quarter: 2015Q3

REPORT INFORMATION
  Report Type: Spontaneous
  Country: US (occurrence: US)
  Receive Date: 20150902
  Receipt Date: 20150902
  Transmission Date: 20151125
  Serious: No
  Sender: FDA-Public Use
  Company Number: US-PFIZER INC-2015289915

PATIENT
  Age: 64 Year
  Sex: Male
  Weight: 66 kg

DRUGS (2)
  1. XANAX XR [Suspect]
     Active Substance: ALPRAZOLAM
     Indication: ANXIETY
     Dosage: UNK
     Route: 048
     Dates: end: 201508
  2. XANAX XR [Suspect]
     Active Substance: ALPRAZOLAM
     Indication: PANIC ATTACK
     Dosage: ALTERNATE BETWEEN 1MG AND 0.5 MG AT NIGHT
     Dates: start: 201508

REACTIONS (7)
  - Feeling abnormal [Unknown]
  - Paraesthesia [Not Recovered/Not Resolved]
  - Vision blurred [Not Recovered/Not Resolved]
  - Eye pain [Not Recovered/Not Resolved]
  - Drug prescribing error [Not Recovered/Not Resolved]
  - Muscle spasms [Not Recovered/Not Resolved]
  - Tension headache [Unknown]

NARRATIVE: CASE EVENT DATE: 20150827
